FAERS Safety Report 4718943-8 (Version None)
Quarter: 2005Q3

REPORT INFORMATION
  Report Type: 
  Country: None (occurrence: None)
  Receive Date: 20050719
  Receipt Date: 20050706
  Transmission Date: 20060218
  Serious: Yes (Other)
  Sender: FDA-Public Use
  Company Number: 2005-02367

PATIENT
  Age: 48 Year
  Sex: Female

DRUGS (2)
  1. COLCHICINE (WATSON LABORATORIES) (COLCHICINE) TABLET, 0.6MG [Suspect]
     Indication: GOUT
     Dosage: ORAL
     Route: 048
  2. ALLOPURINOL (WATSON LABORATORIES) (ALLOPURINOL) TABLET [Concomitant]

REACTIONS (1)
  - DRUG RASH WITH EOSINOPHILIA AND SYSTEMIC SYMPTOMS [None]
